FAERS Safety Report 19551952 (Version 3)
Quarter: 2024Q2

REPORT INFORMATION
  Report Type: Report from Study
  Country: US (occurrence: US)
  Receive Date: 20210715
  Receipt Date: 20240626
  Transmission Date: 20240716
  Serious: Yes (Other)
  Sender: FDA-Public Use
  Company Number: US-PUMA BIOTECHNOLOGY, LTD.-2021-PUM-US003423

PATIENT

DRUGS (15)
  1. NERLYNX [Suspect]
     Active Substance: NERATINIB
     Indication: Breast cancer female
     Dosage: 3 TABLETS, DAILY
     Route: 048
     Dates: start: 20210506, end: 202105
  2. NERLYNX [Suspect]
     Active Substance: NERATINIB
     Indication: Metastases to central nervous system
     Dosage: 4 TABLETS, DAILY
     Route: 048
     Dates: start: 202105, end: 202105
  3. NERLYNX [Suspect]
     Active Substance: NERATINIB
     Dosage: 240 MG, DAILY
     Route: 048
     Dates: start: 20240407, end: 2024
  4. NERLYNX [Suspect]
     Active Substance: NERATINIB
     Dosage: 240 MG, DAILY
     Route: 048
     Dates: start: 2024
  5. XELODA [Suspect]
     Active Substance: CAPECITABINE
     Indication: Metastases to central nervous system
     Dosage: UNK
  6. XELODA [Suspect]
     Active Substance: CAPECITABINE
     Indication: Breast cancer female
  7. MEMANTINE [Concomitant]
     Active Substance: MEMANTINE
     Indication: Product used for unknown indication
  8. CETIRIZINE HCL [Concomitant]
     Active Substance: CETIRIZINE HYDROCHLORIDE
     Indication: Product used for unknown indication
  9. VITAMINS [Concomitant]
     Active Substance: VITAMINS
     Indication: Product used for unknown indication
  10. LEVOTHYROXINE SODIUM [Concomitant]
     Active Substance: LEVOTHYROXINE SODIUM
     Indication: Product used for unknown indication
  11. FAMOTIDINE [Concomitant]
     Active Substance: FAMOTIDINE
     Indication: Product used for unknown indication
  12. EFFEXOR [Concomitant]
     Active Substance: VENLAFAXINE HYDROCHLORIDE
     Indication: Product used for unknown indication
  13. VITAMIN D3 [Concomitant]
     Active Substance: CHOLECALCIFEROL
     Indication: Product used for unknown indication
  14. CALCIUM\VITAMIN D [Concomitant]
     Active Substance: CALCIUM\VITAMIN D
     Indication: Product used for unknown indication
  15. DEXAMETHASONE [Concomitant]
     Active Substance: DEXAMETHASONE
     Indication: Product used for unknown indication

REACTIONS (14)
  - Brain neoplasm [Not Recovered/Not Resolved]
  - Platelet count decreased [Not Recovered/Not Resolved]
  - Blood alkaline phosphatase increased [Unknown]
  - Alanine aminotransferase increased [Unknown]
  - Aspartate aminotransferase increased [Unknown]
  - Dry eye [Not Recovered/Not Resolved]
  - Constipation [Unknown]
  - Dry mouth [Not Recovered/Not Resolved]
  - Dehydration [Unknown]
  - Diarrhoea [Not Recovered/Not Resolved]
  - Diarrhoea [Not Recovered/Not Resolved]
  - Weight decreased [Unknown]
  - Drug titration [Unknown]
  - Product dose omission issue [None]

NARRATIVE: CASE EVENT DATE: 20210501
